FAERS Safety Report 10986714 (Version 1)
Quarter: 2015Q2

REPORT INFORMATION
  Report Type: Spontaneous
  Country: AU (occurrence: None)
  Receive Date: 20150402
  Receipt Date: 20150402
  Transmission Date: 20150821
  Serious: Yes (Other)
  Sender: FDA-Public Use
  Company Number: 2015-10955

PATIENT
  Age: 83 Year
  Sex: Female

DRUGS (1)
  1. EYLEA [Suspect]
     Active Substance: AFLIBERCEPT
     Indication: NEOVASCULAR AGE-RELATED MACULAR DEGENERATION
     Dosage: 2MG, EVERY 12 WEEKS LEFT EYE, INTRAOCULAR
     Route: 031
     Dates: start: 201307

REACTIONS (3)
  - Off label use [None]
  - Paracentesis eye [None]
  - Hypertension [None]

NARRATIVE: CASE EVENT DATE: 2013
